FAERS Safety Report 25336823 (Version 1)
Quarter: 2025Q2

REPORT INFORMATION
  Report Type: Report from Study
  Country: DE (occurrence: DE)
  Receive Date: 20250520
  Receipt Date: 20250520
  Transmission Date: 20250717
  Serious: Yes (Hospitalization)
  Sender: ABBVIE
  Company Number: DE-ABBVIE-5743715

PATIENT
  Age: 58 Year
  Sex: Male

DRUGS (1)
  1. FOSCARBIDOPA\FOSLEVODOPA [Suspect]
     Active Substance: FOSCARBIDOPA\FOSLEVODOPA
     Indication: Parkinson^s disease
     Route: 058
     Dates: start: 20240425, end: 20250306

REACTIONS (3)
  - Restlessness [Unknown]
  - Depression [Unknown]
  - Mental disorder [Recovering/Resolving]

NARRATIVE: CASE EVENT DATE: 20240401
